FAERS Safety Report 4372417-5 (Version None)
Quarter: 2004Q2

REPORT INFORMATION
  Report Type: 
  Country: None (occurrence: None)
  Receive Date: 20040602
  Receipt Date: 20040521
  Transmission Date: 20050107
  Serious: Yes (Life-Threatening, Hospitalization)
  Sender: FDA-Public Use
  Company Number: 04P-056-0257529-00

PATIENT
  Age: 82 Year
  Sex: Female

DRUGS (3)
  1. DEPAKENE [Suspect]
     Indication: EPILEPSY
     Dosage: 500 MG, 2 IN 1 D, PER ORAL
     Route: 048
     Dates: start: 20040115, end: 20040326
  2. GALANTAMINE [Concomitant]
  3. SERETIDE [Concomitant]

REACTIONS (6)
  - CONVULSION [None]
  - DEPRESSED LEVEL OF CONSCIOUSNESS [None]
  - DRUG LEVEL INCREASED [None]
  - HYPONATRAEMIA [None]
  - LYMPHOPENIA [None]
  - MALAISE [None]
